FAERS Safety Report 9752767 (Version 1)
Quarter: 2013Q4

REPORT INFORMATION
  Report Type: Spontaneous
  Country: US (occurrence: None)
  Receive Date: 20131211
  Receipt Date: 20131211
  Transmission Date: 20140711
  Serious: Yes (Other)
  Sender: FDA-Public Use
  Company Number: 2013P1021782

PATIENT
  Age: 43 Year
  Sex: Male

DRUGS (4)
  1. HYDROXYCHLOROQUINE [Suspect]
     Indication: Q FEVER
  2. CIPROFLOXACIN [Suspect]
     Indication: Q FEVER
  3. RIFAMPIN [Suspect]
     Indication: Q FEVER
  4. DOXYCYCLINE [Concomitant]

REACTIONS (13)
  - Nausea [None]
  - Vomiting [None]
  - Hepatic enzyme increased [None]
  - Acute psychosis [None]
  - Hallucinations, mixed [None]
  - Hypertensive emergency [None]
  - Pyrexia [None]
  - Night sweats [None]
  - Dyspnoea [None]
  - Gastrointestinal disorder [None]
  - Hypertensive crisis [None]
  - Renal artery stenosis [None]
  - Drug interaction [None]
